FAERS Safety Report 14467541 (Version 1)
Quarter: 2018Q1

REPORT INFORMATION
  Report Type: Report from Study
  Country: MX (occurrence: MX)
  Receive Date: 20180131
  Receipt Date: 20180131
  Transmission Date: 20180509
  Serious: Yes (Other)
  Sender: FDA-Public Use
  Company Number: PHHY2018MX010755

PATIENT
  Sex: Female
  Weight: 48 kg

DRUGS (6)
  1. LACTULAX [Concomitant]
     Indication: COLITIS
     Dosage: 1 DF, QD
     Route: 048
  2. SENOKOT [Concomitant]
     Active Substance: SENNOSIDES
     Indication: COLITIS
     Dosage: 1 DF, QD
     Route: 048
  3. ACLASTA [Suspect]
     Active Substance: ZOLEDRONIC ACID
     Indication: BONE DISORDER
     Dosage: 1 DF (5/100 MG/ML), Q12MO
     Route: 042
     Dates: start: 20130106
  4. MELOXICAM. [Concomitant]
     Active Substance: MELOXICAM
     Indication: PAIN
     Dosage: 1 DF, QD
     Route: 048
  5. ACLASTA [Suspect]
     Active Substance: ZOLEDRONIC ACID
     Indication: BONE DECALCIFICATION
     Dosage: 1 DF (5/100 MG/ML), Q12MO
     Route: 042
     Dates: start: 20180108
  6. CALTRATE [Concomitant]
     Active Substance: CALCIUM CARBONATE
     Indication: CALCIUM DEFICIENCY
     Dosage: 1 DF, QD
     Route: 048

REACTIONS (1)
  - Spondylolisthesis [Unknown]
